FAERS Safety Report 15952188 (Version 2)
Quarter: 2019Q1

REPORT INFORMATION
  Report Type: Spontaneous
  Country: FR (occurrence: FR)
  Receive Date: 20190211
  Receipt Date: 20190218
  Transmission Date: 20190417
  Serious: Yes (Hospitalization)
  Sender: FDA-Public Use
  Company Number: FR-MYLANLABS-2019M1011518

PATIENT
  Age: 23 Year
  Sex: Male

DRUGS (2)
  1. ABILIFY MAINTENA [Suspect]
     Active Substance: ARIPIPRAZOLE
     Indication: PSYCHOTIC DISORDER
     Dosage: 400 MG, QM
     Route: 030
     Dates: start: 201805
  2. RISPERIDONE. [Suspect]
     Active Substance: RISPERIDONE
     Indication: PRODUCT USED FOR UNKNOWN INDICATION
     Dosage: UNK
     Route: 065
     Dates: start: 2018

REACTIONS (5)
  - Incorrect product administration duration [Unknown]
  - Product supply issue [Unknown]
  - Malaise [Unknown]
  - Product use in unapproved indication [Unknown]
  - Drug monitoring procedure incorrectly performed [Unknown]

NARRATIVE: CASE EVENT DATE: 2018
